FAERS Safety Report 6262157-X (Version None)
Quarter: 2009Q3

REPORT INFORMATION
  Report Type: 
  Country: None (occurrence: None)
  Receive Date: 20090709
  Receipt Date: 20090627
  Transmission Date: 20100115
  Serious: Yes (Other)
  Sender: FDA-Public Use
  Company Number: US-PFIZER INC-2009236537

PATIENT
  Age: 52 Year
  Sex: Male

DRUGS (4)
  1. GEODON [Suspect]
     Indication: BIPOLAR DISORDER
     Dosage: 80 MG, 1X/DAY
  2. ZOLOFT [Concomitant]
     Dosage: 100 MG, 1X/DAY
  3. CAMPRAL [Concomitant]
     Dosage: 333 MG, UNK
  4. TRAZODONE [Concomitant]
     Dosage: 100 MG, AS NEEDED

REACTIONS (3)
  - BALANCE DISORDER [None]
  - COGWHEEL RIGIDITY [None]
  - FALL [None]
